FAERS Safety Report 20461422 (Version 2)
Quarter: 2022Q2

REPORT INFORMATION
  Report Type: Spontaneous
  Country: US (occurrence: US)
  Receive Date: 20220211
  Receipt Date: 20220408
  Transmission Date: 20220721
  Serious: Yes (Hospitalization, Other)
  Sender: FDA-Public Use
  Company Number: US-ASTELLAS-2022US003810

PATIENT
  Age: 69 Year
  Sex: Male

DRUGS (1)
  1. PADCEV [Suspect]
     Active Substance: ENFORTUMAB VEDOTIN-EJFV
     Indication: Bladder cancer
     Dosage: 75 MG, CYCLIC (ON DAYS 1 + 15 OF A 28 DAY CYCLE)
     Route: 042
     Dates: start: 20210413, end: 20211214

REACTIONS (3)
  - Stoma site pain [Recovering/Resolving]
  - Stoma site abscess [Recovering/Resolving]
  - Urinary tract stoma complication [Recovering/Resolving]

NARRATIVE: CASE EVENT DATE: 20220101
